FAERS Safety Report 20431188 (Version 2)
Quarter: 2022Q1

REPORT INFORMATION
  Report Type: Spontaneous
  Country: CN (occurrence: CN)
  Receive Date: 20220204
  Receipt Date: 20220223
  Transmission Date: 20220423
  Serious: Yes (Hospitalization, Other)
  Sender: FDA-Public Use
  Company Number: CN-ELI_LILLY_AND_COMPANY-CN202201009782

PATIENT
  Age: 70 Year
  Sex: Female
  Weight: 65 kg

DRUGS (6)
  1. HUMULIN 70/30 [Suspect]
     Active Substance: INSULIN HUMAN
     Indication: Diabetes mellitus
     Dosage: 35 U, BID (MORNING 35, NIGHT 35)
     Route: 058
     Dates: start: 1999, end: 1999
  2. HUMULIN 70/30 [Suspect]
     Active Substance: INSULIN HUMAN
     Dosage: 35 U, BID (MORNING 35, NIGHT 35)
     Route: 058
     Dates: start: 2002
  3. METFORMIN [Concomitant]
     Active Substance: METFORMIN HYDROCHLORIDE
     Indication: Product used for unknown indication
  4. SITAGLIPTIN [Concomitant]
     Active Substance: SITAGLIPTIN
     Indication: Product used for unknown indication
  5. DAPAGLIFLOZIN [Concomitant]
     Active Substance: DAPAGLIFLOZIN
     Indication: Product used for unknown indication
  6. ASPIRIN [Concomitant]
     Active Substance: ASPIRIN
     Indication: Product used for unknown indication

REACTIONS (9)
  - Diabetes mellitus inadequate control [Unknown]
  - Endocrine pancreatic disorder [Unknown]
  - Rectal cancer [Unknown]
  - Cardiac disorder [Unknown]
  - Retinal haemorrhage [Unknown]
  - Blood glucose increased [Unknown]
  - Retinopathy [Unknown]
  - Visual impairment [Unknown]
  - Cataract [Unknown]

NARRATIVE: CASE EVENT DATE: 20140101
